FAERS Safety Report 12995486 (Version 1)
Quarter: 2016Q4

REPORT INFORMATION
  Report Type: Other
  Country: GB (occurrence: GB)
  Receive Date: 20161202
  Receipt Date: 20161202
  Transmission Date: 20170207
  Serious: Yes (Disabling, Other)
  Sender: FDA-Public Use
  Company Number: GB-PERRIGO-16GB022299

PATIENT

DRUGS (2)
  1. PENICILLIN V                       /00001801/ [Concomitant]
     Active Substance: PENICILLIN V
     Indication: PRODUCT USED FOR UNKNOWN INDICATION
     Route: 065
  2. IBUPROFEN. [Suspect]
     Active Substance: IBUPROFEN
     Indication: TONSILLITIS
     Dosage: 5 ML, UNK
     Route: 048
     Dates: start: 20161013, end: 20161013

REACTIONS (4)
  - Lip swelling [Recovered/Resolved]
  - Tongue blistering [Recovered/Resolved]
  - Unresponsive to stimuli [Unknown]
  - Somnolence [Unknown]

NARRATIVE: CASE EVENT DATE: 20161013
